FAERS Safety Report 6020371-2 (Version None)
Quarter: 2008Q4

REPORT INFORMATION
  Report Type: 
  Country: None (occurrence: None)
  Receive Date: 20081226
  Receipt Date: 20081216
  Transmission Date: 20090506
  Serious: Yes (Hospitalization)
  Sender: FDA-Public Use
  Company Number: JP-MERCK-0812USA04212

PATIENT
  Age: 60 Year
  Sex: Male

DRUGS (2)
  1. PRIMAXIN [Suspect]
     Indication: PNEUMONIA
     Route: 041
     Dates: start: 20060701
  2. MEROPEN [Suspect]
     Indication: PNEUMONIA
     Route: 041

REACTIONS (1)
  - DRUG RASH WITH EOSINOPHILIA AND SYSTEMIC SYMPTOMS [None]
